FAERS Safety Report 10082044 (Version 1)
Quarter: 2014Q2

REPORT INFORMATION
  Report Type: Spontaneous
  Country: US (occurrence: US)
  Receive Date: 20140416
  Receipt Date: 20140416
  Transmission Date: 20141212
  Serious: No
  Sender: FDA-Public Use
  Company Number: US-TEVA-475944USA

PATIENT
  Sex: Female

DRUGS (3)
  1. PROAIR HFA [Suspect]
     Indication: COUGH
     Dates: start: 2013
  2. PROAIR HFA [Suspect]
     Indication: PNEUMONIA
  3. PROAIR HFA [Suspect]
     Indication: BRONCHITIS

REACTIONS (2)
  - Cough [Not Recovered/Not Resolved]
  - Weight increased [Not Recovered/Not Resolved]
